FAERS Safety Report 15045691 (Version 3)
Quarter: 2018Q3

REPORT INFORMATION
  Report Type: Spontaneous
  Country: LT (occurrence: LT)
  Receive Date: 20180621
  Receipt Date: 20180810
  Transmission Date: 20181010
  Serious: Yes (Death, Hospitalization, Other)
  Sender: FDA-Public Use
  Company Number: LT-BAYER-2018-113590

PATIENT
  Sex: Male
  Weight: 75 kg

DRUGS (16)
  1. FENTANYL. [Concomitant]
     Active Substance: FENTANYL
     Route: 062
  2. DEXAMETHASON [DEXAMETHASONE] [Concomitant]
     Active Substance: DEXAMETHASONE
  3. XOFIGO [Suspect]
     Active Substance: RADIUM RA-223 DICHLORIDE
     Indication: HORMONE-REFRACTORY PROSTATE CANCER
     Dosage: 1.2 MBQ
     Route: 042
     Dates: start: 20170525, end: 20170525
  4. TARDYFERON [Concomitant]
     Active Substance: FERROUS SULFATE
  5. NACL [Concomitant]
     Active Substance: SODIUM CHLORIDE
     Dosage: 0.9% 500 ML
     Route: 042
  6. CEFUROXIME. [Concomitant]
     Active Substance: CEFUROXIME
  7. XOFIGO [Suspect]
     Active Substance: RADIUM RA-223 DICHLORIDE
     Indication: METASTASES TO BONE
     Dosage: 4.07 MBQ
     Route: 042
     Dates: start: 20170622, end: 20170622
  8. ZOLEDRONIC ACID [Concomitant]
     Active Substance: ZOLEDRONIC ACID
     Dosage: 4 MG EVERY 4 WEEK
     Route: 042
  9. XOFIGO [Suspect]
     Active Substance: RADIUM RA-223 DICHLORIDE
     Indication: HORMONE-REFRACTORY PROSTATE CANCER
     Dosage: 3.85 MBQ
     Route: 042
     Dates: start: 20170928, end: 20170928
  10. TRAMADOL. [Concomitant]
     Active Substance: TRAMADOL
  11. XOFIGO [Suspect]
     Active Substance: RADIUM RA-223 DICHLORIDE
     Indication: HORMONE-REFRACTORY PROSTATE CANCER
     Dosage: 3.85 MBQ
     Route: 042
     Dates: start: 20170727, end: 20170727
  12. GABAPENTIN. [Concomitant]
     Active Substance: GABAPENTIN
  13. XOFIGO [Suspect]
     Active Substance: RADIUM RA-223 DICHLORIDE
     Indication: HORMONE-REFRACTORY PROSTATE CANCER
     Dosage: 3.85 MBQ
     Route: 042
     Dates: start: 20170831, end: 20170831
  14. NYSTATINE [Concomitant]
  15. AMICACINA [Concomitant]
     Active Substance: AMIKACIN
  16. SOLUTIO RINGERI [Concomitant]

REACTIONS (15)
  - Urosepsis [Fatal]
  - Urinary tract obstruction [None]
  - Hydronephrosis [Fatal]
  - Pyonephrosis [Fatal]
  - Paraparesis [None]
  - Eating disorder [None]
  - Renal failure [Fatal]
  - Nephrostomy [None]
  - Pyrexia [None]
  - Oropharyngeal pain [None]
  - Anaemia [Recovering/Resolving]
  - Urinary tract disorder [None]
  - Azotaemia [None]
  - Asthenia [None]
  - Nausea [None]

NARRATIVE: CASE EVENT DATE: 2017
